FAERS Safety Report 4626109-5 (Version None)
Quarter: 2005Q1

REPORT INFORMATION
  Report Type: 
  Country: None (occurrence: None)
  Receive Date: 20050330
  Receipt Date: 20050310
  Transmission Date: 20050727
  Serious: Yes (Hospitalization, Other)
  Sender: FDA-Public Use
  Company Number: US_010362736

PATIENT
  Age: 91 Year
  Sex: Male

DRUGS (11)
  1. HUMALOG [Suspect]
     Indication: DIABETES MELLITUS
     Dosage: 16 U DAY
  2. HUMULIN N [Suspect]
     Indication: DIABETES MELLITUS
  3. FORTEO [Suspect]
     Indication: OSTEOPOROSIS
     Dates: start: 20050304
  4. ZESTRIL [Concomitant]
  5. ALLOPURINOL [Concomitant]
  6. TIAZAC [Concomitant]
  7. COUMADIN [Concomitant]
  8. ZOCOR (SIMVASTATIN RATIOPHARM) [Concomitant]
  9. PROBENECID [Concomitant]
  10. FOSAMAX [Concomitant]
  11. NOVOLIN N [Concomitant]

REACTIONS (4)
  - ATRIAL FIBRILLATION [None]
  - CARDIAC VALVE DISEASE [None]
  - DIABETES MELLITUS INADEQUATE CONTROL [None]
  - OSTEOPOROSIS [None]
